FAERS Safety Report 23130819 (Version 2)
Quarter: 2023Q4

REPORT INFORMATION
  Report Type: Spontaneous
  Country: US (occurrence: US)
  Receive Date: 20231031
  Receipt Date: 20231128
  Transmission Date: 20240110
  Serious: Yes (Hospitalization, Other)
  Sender: FDA-Public Use
  Company Number: US-HORIZON THERAPEUTICS-HZN-2023-008503

PATIENT

DRUGS (3)
  1. PROCYSBI [Suspect]
     Active Substance: CYSTEAMINE BITARTRATE
     Indication: Cystinosis
     Dosage: 1050 MG, BID
     Route: 048
  2. K dur [Concomitant]
     Dosage: 40 MEQ, 4 TIMES A DAY
  3. NA BICARBONATE BAXTER [Concomitant]
     Dosage: 4 DOSAGE FORM, BID (650 MG)

REACTIONS (2)
  - Chronic kidney disease [Not Recovered/Not Resolved]
  - Dehydration [Recovered/Resolved]
